FAERS Safety Report 10622182 (Version 1)
Quarter: 2014Q4

REPORT INFORMATION
  Report Type: Spontaneous
  Country: US (occurrence: US)
  Receive Date: 20141203
  Receipt Date: 20141203
  Transmission Date: 20150529
  Serious: Yes (Hospitalization, Other)
  Sender: FDA-Public Use
  Company Number: US-SA-2014SA165137

PATIENT
  Sex: Female

DRUGS (4)
  1. PLAVIX [Suspect]
     Active Substance: CLOPIDOGREL BISULFATE
     Route: 065
  2. COUMADIN [Suspect]
     Active Substance: WARFARIN SODIUM
     Route: 065
  3. SPIRIVA [Suspect]
     Active Substance: TIOTROPIUM BROMIDE MONOHYDRATE
     Indication: CHRONIC OBSTRUCTIVE PULMONARY DISEASE
     Route: 065
  4. ANTI-SMOKING AGENTS [Suspect]
     Active Substance: UNSPECIFIED INGREDIENT
     Indication: EX-TOBACCO USER
     Route: 065

REACTIONS (17)
  - Facial pain [Unknown]
  - Infection [Unknown]
  - Aneurysm [Unknown]
  - Pain in extremity [Unknown]
  - Arteriosclerosis [Unknown]
  - Adverse event [Unknown]
  - Back pain [Unknown]
  - Chest discomfort [Unknown]
  - Heart rate increased [Unknown]
  - Cardiac disorder [Unknown]
  - Sinus operation [Unknown]
  - Transient ischaemic attack [Unknown]
  - Abdominal distension [Unknown]
  - Catheterisation cardiac [Unknown]
  - Ill-defined disorder [Unknown]
  - Apnoea [Unknown]
  - Vitamin B12 decreased [Unknown]
